FAERS Safety Report 9893637 (Version 2)
Quarter: 2014Q1

REPORT INFORMATION
  Report Type: Spontaneous
  Country: FR (occurrence: FR)
  Receive Date: 20140213
  Receipt Date: 20140213
  Transmission Date: 20141002
  Serious: Yes (Hospitalization)
  Sender: FDA-Public Use
  Company Number: PHHY2014FR008415

PATIENT
  Age: 8 Year
  Sex: Female

DRUGS (3)
  1. TRILEPTAL [Suspect]
     Indication: GRAND MAL CONVULSION
     Dosage: 5 DF, DAILY (3 IN THE MORNING AND 2 IN THE EVENING)
     Route: 048
     Dates: start: 201112
  2. TRILEPTAL [Interacting]
     Dosage: 3 DF, BID (3 IN THE MORNING AND 3 IN THE EVENING)
     Route: 048
  3. PYOSTACINE [Interacting]
     Indication: PARONYCHIA
     Dosage: UNK UKN, UNK, BID 3 SDO (AS REPORTED)
     Route: 048
     Dates: start: 20130131, end: 20130208

REACTIONS (3)
  - Drug interaction [Unknown]
  - Grand mal convulsion [Recovered/Resolved]
  - Urinary tract infection [Not Recovered/Not Resolved]
